FAERS Safety Report 7067064 (Version 2)
Quarter: 2014Q1

REPORT INFORMATION
  Report Type: Spontaneous
  Country: US (occurrence: None)
  Receive Date: 20090723
  Receipt Date: 20140124
  Transmission Date: 20141002
  Serious: Yes (Other)
  Sender: FDA-Public Use
  Company Number: 2009S1005604

PATIENT
  Sex: Female

DRUGS (1)
  1. SODIUM PHOSPHATE, DIBASIC [Suspect]
     Dosage: PO
     Route: 048
     Dates: start: 20081101, end: 20081101

REACTIONS (1)
  - Blood creatinine increased [None]
